FAERS Safety Report 5162262-5 (Version None)
Quarter: 2006Q4

REPORT INFORMATION
  Report Type: 
  Country: None (occurrence: None)
  Receive Date: 20061121
  Receipt Date: 20061102
  Transmission Date: 20070319
  Serious: Yes (Death)
  Sender: FDA-Public Use
  Company Number: 061108-0001006

PATIENT
  Age: 38 Year
  Sex: 0

DRUGS (3)
  1. NEOPROFEN [Suspect]
     Indication: COMPLETED SUICIDE
     Dosage: PO
     Route: 048
  2. SERTRALINE [Suspect]
     Indication: COMPLETED SUICIDE
     Dosage: PO
     Route: 048
  3. LAMOTRIGINE [Suspect]
     Indication: COMPLETED SUICIDE
     Dosage: PO
     Route: 048

REACTIONS (3)
  - COMPLETED SUICIDE [None]
  - INTENTIONAL SELF-INJURY [None]
  - SUBSTANCE ABUSE [None]
